FAERS Safety Report 25378921 (Version 1)
Quarter: 2025Q2

REPORT INFORMATION
  Report Type: Spontaneous
  Country: US (occurrence: US)
  Receive Date: 20250530
  Receipt Date: 20250530
  Transmission Date: 20250716
  Serious: Yes (Hospitalization, Other)
  Sender: SANOFI AVENTIS
  Company Number: US-SA-2025SA153757

PATIENT
  Age: 62 Year
  Sex: Female
  Weight: 73.18 kg

DRUGS (41)
  1. DUPIXENT [Suspect]
     Active Substance: DUPILUMAB
     Indication: Dermatitis atopic
     Dosage: 300 MG, QOW
     Route: 058
  2. ORENITRAM [Concomitant]
     Active Substance: TREPROSTINIL
  3. OZEMPIC [Concomitant]
     Active Substance: SEMAGLUTIDE
  4. ALBUTEROL SULFATE [Concomitant]
     Active Substance: ALBUTEROL SULFATE
  5. LOSARTAN [Concomitant]
     Active Substance: LOSARTAN
  6. NAPROXEN [Concomitant]
     Active Substance: NAPROXEN
  7. FERROUS SULFATE [Concomitant]
     Active Substance: FERROUS SULFATE
  8. ROSUVASTATIN CALCIUM [Concomitant]
     Active Substance: ROSUVASTATIN CALCIUM
  9. FEXOFENADINE HYDROCHLORIDE\PHENYLEPHRINE HYDROCHLORIDE [Concomitant]
     Active Substance: FEXOFENADINE HYDROCHLORIDE\PHENYLEPHRINE HYDROCHLORIDE
  10. MINERALS\VITAMINS [Concomitant]
     Active Substance: MINERALS\VITAMINS
  11. TYLENOL [Concomitant]
     Active Substance: ACETAMINOPHEN
  12. OPSUMIT [Concomitant]
     Active Substance: MACITENTAN
  13. JARDIANCE [Concomitant]
     Active Substance: EMPAGLIFLOZIN
  14. HYDROCHLOROTHIAZIDE [Concomitant]
     Active Substance: HYDROCHLOROTHIAZIDE
  15. TRELEGY ELLIPTA [Concomitant]
     Active Substance: FLUTICASONE FUROATE\UMECLIDINIUM BROMIDE\VILANTEROL TRIFENATATE
  16. BUPROPION HYDROCHLORIDE [Concomitant]
     Active Substance: BUPROPION HYDROCHLORIDE
  17. VITAMIN D3 [Concomitant]
     Active Substance: CHOLECALCIFEROL
  18. ASPIRIN [Concomitant]
     Active Substance: ASPIRIN
  19. ZYRTEC [Concomitant]
     Active Substance: CETIRIZINE HYDROCHLORIDE
  20. SINGULAIR [Concomitant]
     Active Substance: MONTELUKAST SODIUM
  21. SILDENAFIL CITRATE [Concomitant]
     Active Substance: SILDENAFIL CITRATE
  22. PROGESTERONE [Concomitant]
     Active Substance: PROGESTERONE
  23. INTRAROSA [Concomitant]
     Active Substance: PRASTERONE
  24. PANTOPRAZOLE SODIUM [Concomitant]
     Active Substance: PANTOPRAZOLE SODIUM
  25. VIVELLE [Concomitant]
     Active Substance: ESTRADIOL
  26. BREO ELLIPTA [Concomitant]
     Active Substance: FLUTICASONE FUROATE\VILANTEROL TRIFENATATE
  27. OMEPRAZOLE [Concomitant]
     Active Substance: OMEPRAZOLE
  28. VITAMINS NOS [Concomitant]
     Active Substance: VITAMINS
  29. PYRIDOXINE [Concomitant]
     Active Substance: PYRIDOXINE
  30. FUROSEMIDE [Concomitant]
     Active Substance: FUROSEMIDE
  31. QUDEXY XR [Concomitant]
     Active Substance: TOPIRAMATE
  32. TOPAMAX [Concomitant]
     Active Substance: TOPIRAMATE
  33. VITAMIN B12 [Concomitant]
     Active Substance: CYANOCOBALAMIN
  34. OXYGEN [Concomitant]
     Active Substance: OXYGEN
  35. FENOFIBRATE [Concomitant]
     Active Substance: FENOFIBRATE
  36. DOCONEXENT\ICOSAPENT [Concomitant]
     Active Substance: DOCONEXENT\ICOSAPENT
  37. MUCINEX [Concomitant]
     Active Substance: GUAIFENESIN
  38. DILTIAZEM HYDROCHLORIDE [Concomitant]
     Active Substance: DILTIAZEM HYDROCHLORIDE
  39. BIOTIN [Concomitant]
     Active Substance: BIOTIN
  40. COMBIVENT RESPIMAT [Concomitant]
     Active Substance: ALBUTEROL SULFATE\IPRATROPIUM BROMIDE
  41. KLOR-CON [Concomitant]
     Active Substance: POTASSIUM CHLORIDE

REACTIONS (3)
  - Thrombosis [Recovered/Resolved]
  - Cardiac operation [Unknown]
  - Aneurysm [Unknown]

NARRATIVE: CASE EVENT DATE: 20250501
